FAERS Safety Report 10023553 (Version 1)
Quarter: 2014Q1

REPORT INFORMATION
  Report Type: Spontaneous
  Country: US (occurrence: None)
  Receive Date: 20140319
  Receipt Date: 20140319
  Transmission Date: 20141002
  Serious: Yes (Life-Threatening)
  Sender: FDA-Public Use
  Company Number: None

PATIENT
  Age: 72 Year
  Sex: Female
  Weight: 53.52 kg

DRUGS (1)
  1. PLAVIX 75  MG [Suspect]
     Indication: CEREBROVASCULAR ACCIDENT
     Dosage: 1 DAILY

REACTIONS (3)
  - Arterial rupture [None]
  - Aortic aneurysm [None]
  - Haemorrhage [None]
